FAERS Safety Report 9606384 (Version 1)
Quarter: 2013Q4

REPORT INFORMATION
  Report Type: Spontaneous
  Country: US (occurrence: US)
  Receive Date: 20131008
  Receipt Date: 20131008
  Transmission Date: 20140711
  Serious: No
  Sender: FDA-Public Use
  Company Number: US-AMGEN-USASP2013052671

PATIENT
  Age: 69 Year
  Sex: Female

DRUGS (1)
  1. PROLIA [Suspect]
     Indication: OSTEOPENIA
     Dosage: UNK
     Route: 065
     Dates: start: 20130617

REACTIONS (5)
  - Rash pruritic [Recovering/Resolving]
  - Discomfort [Unknown]
  - Rash papular [Unknown]
  - Dermatitis acneiform [Unknown]
  - Petechiae [Unknown]
